FAERS Safety Report 6554478-8 (Version None)
Quarter: 2010Q1

REPORT INFORMATION
  Report Type: 
  Country: None (occurrence: None)
  Receive Date: 20100127
  Receipt Date: 20100125
  Transmission Date: 20100710
  Serious: Yes (Life-Threatening, Hospitalization, Other)
  Sender: FDA-Public Use
  Company Number: PT-WYE-H12080609

PATIENT
  Sex: Female
  Weight: 81 kg

DRUGS (2)
  1. GEMTUZUMAB OZOGAMICIN [Suspect]
     Indication: ACUTE MYELOID LEUKAEMIA
     Dosage: 12.500 MG CUMULATIVE DOSE GIVEN
     Dates: start: 20051004, end: 20051018
  2. ACICLOVIR [Concomitant]
     Dosage: 400 MG
     Route: 048
     Dates: start: 20051003, end: 20051220

REACTIONS (2)
  - DEEP VEIN THROMBOSIS [None]
  - LUNG INFECTION [None]
